FAERS Safety Report 7078176-X (Version None)
Quarter: 2010Q4

REPORT INFORMATION
  Report Type: 
  Country: None (occurrence: None)
  Receive Date: 20101101
  Receipt Date: 20101101
  Transmission Date: 20110411
  Serious: Yes (Disabling)
  Sender: FDA-Public Use
  Company Number: None

PATIENT
  Sex: Male
  Weight: 100 kg

DRUGS (1)
  1. SIMVASTATIN [Suspect]
     Indication: BLOOD CHOLESTEROL INCREASED
     Dosage: 20MG 1 A DAY
     Dates: start: 20100201, end: 20100312

REACTIONS (6)
  - ASTHENIA [None]
  - GAIT DISTURBANCE [None]
  - MUSCLE ATROPHY [None]
  - MYALGIA [None]
  - TREMOR [None]
  - URINE FLOW DECREASED [None]
